FAERS Safety Report 6020563-2 (Version None)
Quarter: 2008Q4

REPORT INFORMATION
  Report Type: 
  Country: None (occurrence: None)
  Receive Date: 20081226
  Receipt Date: 20081226
  Transmission Date: 20090506
  Serious: Yes (Other)
  Sender: FDA-Public Use
  Company Number: GB-ABBOTT-08P-167-0492148-00

PATIENT
  Sex: Female

DRUGS (2)
  1. CLARITHROMYCIN [Suspect]
     Indication: DRUG USE FOR UNKNOWN INDICATION
     Dosage: 1000 MG, DAILY
     Route: 048
  2. CLARITHROMYCIN [Suspect]
     Dosage: 500 MG, DAILY

REACTIONS (8)
  - ACCIDENTAL OVERDOSE [None]
  - BLOOD PRESSURE INCREASED [None]
  - CHILLS [None]
  - HEADACHE [None]
  - NAUSEA [None]
  - PRESYNCOPE [None]
  - PULSE PRESSURE DECREASED [None]
  - TINNITUS [None]
